FAERS Safety Report 12106577 (Version 1)
Quarter: 2016Q1

REPORT INFORMATION
  Report Type: Spontaneous
  Country: US (occurrence: US)
  Receive Date: 20160223
  Receipt Date: 20160223
  Transmission Date: 20160526
  Serious: Yes (Hospitalization)
  Sender: FDA-Public Use
  Company Number: US-BAUSCH-BL-2016-004141

PATIENT
  Age: 65 Year
  Sex: Female
  Weight: 64.47 kg

DRUGS (1)
  1. XIFAXAN [Suspect]
     Active Substance: RIFAXIMIN
     Indication: HEPATIC FAILURE
     Route: 048
     Dates: start: 201509

REACTIONS (5)
  - Ammonia increased [Recovering/Resolving]
  - Faeces discoloured [Recovering/Resolving]
  - Decreased appetite [Recovering/Resolving]
  - Drug dose omission [Unknown]
  - Haematemesis [Recovering/Resolving]

NARRATIVE: CASE EVENT DATE: 201602
